FAERS Safety Report 13655677 (Version 1)
Quarter: 2017Q2

REPORT INFORMATION
  Report Type: Spontaneous
  Country: US (occurrence: US)
  Receive Date: 20170615
  Receipt Date: 20170615
  Transmission Date: 20170830
  Serious: No
  Sender: FDA-Public Use
  Company Number: US-GLAXOSMITHKLINE-US2017091555

PATIENT
  Sex: Female

DRUGS (6)
  1. COUMADIN [Concomitant]
     Active Substance: WARFARIN SODIUM
  2. ASPIRIN (BABY) [Concomitant]
     Active Substance: ASPIRIN
  3. VENTOLIN HFA [Suspect]
     Active Substance: ALBUTEROL SULFATE
     Indication: WHEEZING
     Dosage: 2 PUFF(S), Z
     Route: 055
  4. VENTOLIN HFA [Suspect]
     Active Substance: ALBUTEROL SULFATE
     Indication: ASTHMA
  5. VENTOLIN HFA [Suspect]
     Active Substance: ALBUTEROL SULFATE
     Indication: UPPER RESPIRATORY TRACT INFECTION
     Dosage: 2 PUFF(S), Z
     Route: 055
  6. QVAR [Concomitant]
     Active Substance: BECLOMETHASONE DIPROPIONATE

REACTIONS (7)
  - Upper respiratory tract infection [Unknown]
  - Cough [Not Recovered/Not Resolved]
  - Sputum retention [Not Recovered/Not Resolved]
  - Fatigue [Not Recovered/Not Resolved]
  - Ill-defined disorder [Unknown]
  - Prescribed overdose [Unknown]
  - Drug ineffective [Unknown]
